FAERS Safety Report 25812158 (Version 1)
Quarter: 2025Q3

REPORT INFORMATION
  Report Type: Spontaneous
  Country: AU (occurrence: AU)
  Receive Date: 20250917
  Receipt Date: 20250917
  Transmission Date: 20251020
  Serious: Yes (Life-Threatening, Hospitalization, Other)
  Sender: AMNEAL
  Company Number: AU-AMNEAL PHARMACEUTICALS-2025-AMRX-03502

PATIENT
  Age: 24 Year
  Sex: Male

DRUGS (5)
  1. BACLOFEN [Suspect]
     Active Substance: BACLOFEN
     Indication: Alcohol use disorder
     Dosage: 10 MILLIGRAM, 3 /DAY
     Route: 065
  2. BACLOFEN [Suspect]
     Active Substance: BACLOFEN
     Route: 065
  3. BACLOFEN [Suspect]
     Active Substance: BACLOFEN
     Dosage: 5 MG, 3 /DAY
     Route: 065
  4. ESCITALOPRAM [Suspect]
     Active Substance: ESCITALOPRAM OXALATE
     Indication: Product used for unknown indication
     Route: 065
  5. ALCOHOL [Suspect]
     Active Substance: ALCOHOL
     Indication: Product used for unknown indication
     Route: 065

REACTIONS (8)
  - Bradyarrhythmia [Recovered/Resolved]
  - Cardiac arrest [Recovered/Resolved]
  - Drug withdrawal syndrome [Recovered/Resolved]
  - Delirium [Recovered/Resolved]
  - Intentional overdose [Unknown]
  - Hypotension [Recovered/Resolved]
  - Agitation [Recovered/Resolved]
  - Off label use [Unknown]
